FAERS Safety Report 8209494-7 (Version None)
Quarter: 2012Q1

REPORT INFORMATION
  Report Type: 
  Country: None (occurrence: None)
  Receive Date: 20120314
  Receipt Date: 20120305
  Transmission Date: 20120608
  Serious: Yes (Hospitalization, Disabling)
  Sender: FDA-Public Use
  Company Number: GB-JNJFOC-20120213683

PATIENT
  Sex: Male
  Weight: 108 kg

DRUGS (6)
  1. STELARA [Suspect]
     Indication: PSORIASIS
     Route: 058
     Dates: start: 20100222, end: 20111201
  2. TRAMADOL HCL [Concomitant]
     Indication: PAIN
     Route: 065
     Dates: start: 20110909
  3. CITALOPRAM [Concomitant]
     Indication: DEPRESSION
     Route: 065
     Dates: start: 20100108
  4. FENTANYL [Concomitant]
     Indication: PAIN
     Route: 065
     Dates: start: 20110601
  5. ZOPICLONE [Concomitant]
     Route: 065
     Dates: start: 20081126
  6. HYDROXYZINE [Concomitant]
     Indication: PRURITUS
     Route: 065
     Dates: start: 20081126

REACTIONS (3)
  - PAIN [None]
  - SURGERY [None]
  - IMPAIRED HEALING [None]
